FAERS Safety Report 21320411 (Version 1)
Quarter: 2022Q3

REPORT INFORMATION
  Report Type: Spontaneous
  Country: US (occurrence: None)
  Receive Date: 20220906
  Receipt Date: 20220906
  Transmission Date: 20221027
  Serious: Yes (Hospitalization, Other)
  Sender: FDA-Public Use
  Company Number: None

PATIENT
  Sex: Female
  Weight: 130.63 kg

DRUGS (2)
  1. BUPROPION HYDROCHLORIDE [Suspect]
     Active Substance: BUPROPION HYDROCHLORIDE
  2. ARIPIPRAZOLE [Suspect]
     Active Substance: ARIPIPRAZOLE

REACTIONS (5)
  - Nausea [None]
  - Vomiting [None]
  - Dehydration [None]
  - Maternal exposure timing unspecified [None]
  - Maternal drugs affecting foetus [None]
